FAERS Safety Report 7204384-0 (Version None)
Quarter: 2010Q4

REPORT INFORMATION
  Report Type: 
  Country: None (occurrence: None)
  Receive Date: 20101230
  Receipt Date: 20101222
  Transmission Date: 20110411
  Serious: Yes (Other)
  Sender: FDA-Public Use
  Company Number: JP-SHIRE-SPV1-2009-00618

PATIENT
  Sex: Male
  Weight: 35 kg

DRUGS (3)
  1. IDURSULFASE [Suspect]
     Indication: MUCOPOLYSACCHARIDOSIS II
     Dosage: 18 MG, UNK
     Route: 041
     Dates: start: 20050818, end: 20090115
  2. IDURSULFASE [Suspect]
     Dosage: 18 MG, UNK
     Route: 041
     Dates: start: 20090123, end: 20090226
  3. IDURSULFASE [Suspect]
     Dosage: 18 MG, UNK
     Route: 041
     Dates: start: 20090306

REACTIONS (6)
  - CHEILITIS [None]
  - INFUSION RELATED REACTION [None]
  - PRODUCT QUALITY ISSUE [None]
  - PRURITUS [None]
  - SWELLING [None]
  - URTICARIA [None]
